FAERS Safety Report 4421350-9 (Version None)
Quarter: 2004Q3

REPORT INFORMATION
  Report Type: 
  Country: None (occurrence: None)
  Receive Date: 20040706
  Receipt Date: 20040426
  Transmission Date: 20050211
  Serious: No
  Sender: FDA-Public Use
  Company Number: 236571

PATIENT
  Age: 62 Year
  Sex: Male
  Weight: 64.4 kg

DRUGS (2)
  1. NOVOLOG [Suspect]
     Indication: DIABETES MELLITUS INSULIN-DEPENDENT
     Dosage: BG } 250, SS 1 - 3 UNITS, SUBCUTANEOUS
     Route: 058
     Dates: start: 20010101
  2. NOVOLIN 70/30 [Suspect]
     Indication: DIABETES MELLITUS INSULIN-DEPENDENT
     Dosage: 30 - 36 UNITS QD, SUBCUTANEOUS
     Route: 058
     Dates: start: 19840101

REACTIONS (2)
  - BLOOD GLUCOSE DECREASED [None]
  - MEDICATION ERROR [None]
